FAERS Safety Report 19726079 (Version 2)
Quarter: 2021Q3

REPORT INFORMATION
  Report Type: Spontaneous
  Country: US (occurrence: US)
  Receive Date: 20210820
  Receipt Date: 20210831
  Transmission Date: 20211014
  Serious: Yes (Other)
  Sender: FDA-Public Use
  Company Number: US-AMGEN-USASP2021126683

PATIENT
  Age: 66 Year
  Sex: Female

DRUGS (21)
  1. BUPROPION. [Concomitant]
     Active Substance: BUPROPION
     Dosage: ONE TABLET BY MOUTH EVERY MORNING ONE HOUR BEFORE BREAKFAST
     Route: 048
     Dates: start: 20210811
  2. ZYRTEC [Concomitant]
     Active Substance: CETIRIZINE HYDROCHLORIDE
     Dosage: 1 DOSAGE FORM, QD
     Route: 048
  3. ISOSORBIDE MONONITRATE. [Concomitant]
     Active Substance: ISOSORBIDE MONONITRATE
     Dosage: 1 DOSAGE FORM, QD EVERY MORNING 1 HR BEFORE BREAKFAST
     Route: 048
     Dates: start: 20210728
  4. ALBUTEROL [SALBUTAMOL] [Concomitant]
     Active Substance: ALBUTEROL
     Indication: WHEEZING
     Dosage: INHALE 2 PUFFS INTO THE LUNQS EVERY 6( SIX) HOURS AS NEEDED, Q6H
     Dates: start: 20210811
  5. VITAMIN D3 [Concomitant]
     Active Substance: CHOLECALCIFEROL
     Dosage: 1 DOSAGE FORM, QD
     Route: 048
  6. CHOLESTYRAMINE LIGHT [Concomitant]
     Active Substance: CHOLESTYRAMINE
     Dosage: 1 PACKET , QD
     Route: 048
     Dates: start: 20210608
  7. TRAMADOL. [Concomitant]
     Active Substance: TRAMADOL
     Indication: PAIN
     Dosage: 1 DOSAGE FORM, Q6H AS NEEDED
     Route: 048
     Dates: start: 20210723
  8. REPATHA [Suspect]
     Active Substance: EVOLOCUMAB
     Indication: PRODUCT USED FOR UNKNOWN INDICATION
     Dosage: 140 MG/ML, Q2WK
     Route: 058
  9. UBIQUINOL [Concomitant]
     Active Substance: UBIQUINOL
     Dosage: 2 DOSAGE FORM, QD
     Route: 048
  10. ASPIRIN [ACETYLSALICYLIC ACID] [Concomitant]
     Active Substance: ASPIRIN
     Dosage: 1 DOSAGE FORM, QD
     Route: 048
     Dates: start: 20210501
  11. GLUCAGON EMERGENCY KIT [Concomitant]
     Active Substance: GLUCAGON
     Dosage: 1 MILLIGRAM INTO THE MUSCLE AS NEEDED
     Dates: start: 20201104
  12. TOUJEO [Concomitant]
     Active Substance: INSULIN GLARGINE
     Dosage: 20 UNIT, QD
     Route: 058
     Dates: start: 20210612
  13. SPIRONOLACTONE. [Concomitant]
     Active Substance: SPIRONOLACTONE
     Dosage: 0.5 DOSAGE FORM, QD
     Route: 048
     Dates: start: 20210616
  14. ZETIA [Concomitant]
     Active Substance: EZETIMIBE
     Dosage: 1 DOSAGE FORM, QD
     Route: 048
     Dates: start: 20210728
  15. ALBUTEROL [SALBUTAMOL] [Concomitant]
     Active Substance: ALBUTEROL
     Indication: DYSPNOEA
  16. SYMBICORT [Concomitant]
     Active Substance: BUDESONIDE\FORMOTEROL FUMARATE DIHYDRATE
     Dosage: IHNALE 2 PUFFS INTO THE LUNGS, Q12H
     Dates: start: 20210811
  17. FUROSEMIDE. [Concomitant]
     Active Substance: FUROSEMIDE
     Dosage: 1 DOSAGE FORM, QD AS NEEDED
     Dates: start: 20210728
  18. HUMALOG [Concomitant]
     Active Substance: INSULIN LISPRO
     Dosage: 5?10 UNITS, TID
     Dates: start: 20210421
  19. VITAMINS NOS [Concomitant]
     Active Substance: VITAMINS
     Dosage: 1 DOSAGE FORM, QD
     Route: 048
  20. ENTRESTO [Concomitant]
     Active Substance: SACUBITRIL\VALSARTAN
     Dosage: 1 DOSAGE FORM, BID
     Route: 048
     Dates: start: 20210728
  21. TICAGRELOR. [Concomitant]
     Active Substance: TICAGRELOR
     Dosage: 1 DOSAGE FORM, BID
     Route: 048
     Dates: start: 20210728

REACTIONS (1)
  - Diabetes mellitus [Unknown]
